FAERS Safety Report 9640811 (Version 1)
Quarter: 2013Q4

REPORT INFORMATION
  Report Type: Spontaneous
  Country: US (occurrence: None)
  Receive Date: 20131021
  Receipt Date: 20131021
  Transmission Date: 20140711
  Serious: Yes (Other)
  Sender: FDA-Public Use
  Company Number: 1260091

PATIENT
  Age: 56 Year
  Sex: Female
  Weight: 54.43 kg

DRUGS (2)
  1. NOSTRILLA [Suspect]
     Indication: NASAL CONGESTION
     Dosage: 2 SQUIRTS INTO EACH NOSTRIL
     Dates: start: 200310
  2. NOSTRILLA [Suspect]
     Indication: NASAL DISCOMFORT
     Dosage: 2 SQUIRTS INTO EACH NOSTRIL
     Dates: start: 200310

REACTIONS (4)
  - Burning sensation [None]
  - Oropharyngeal pain [None]
  - Headache [None]
  - Drug dependence [None]
